FAERS Safety Report 16835989 (Version 1)
Quarter: 2019Q3

REPORT INFORMATION
  Report Type: Report from Study
  Country: CO (occurrence: CO)
  Receive Date: 20190920
  Receipt Date: 20190920
  Transmission Date: 20191005
  Serious: Yes (Life-Threatening, Other)
  Sender: FDA-Public Use
  Company Number: PHHY2019CO170588

PATIENT
  Age: 35 Year
  Sex: Male
  Weight: 64 kg

DRUGS (5)
  1. CALCIUM [Concomitant]
     Active Substance: CALCIUM
     Indication: PRODUCT USED FOR UNKNOWN INDICATION
     Dosage: 2 DF, QD
     Route: 065
  2. DEFLAZACORT [Concomitant]
     Active Substance: DEFLAZACORT
     Indication: PRODUCT USED FOR UNKNOWN INDICATION
     Dosage: 2 DF, QD
     Route: 065
  3. STAFEN [Concomitant]
     Indication: PRODUCT USED FOR UNKNOWN INDICATION
     Dosage: 1 DF, QD
     Route: 065
  4. ENAPRIL [Concomitant]
     Active Substance: ENALAPRIL
     Indication: PRODUCT USED FOR UNKNOWN INDICATION
     Dosage: 2 DF, QD
     Route: 065
  5. COSENTYX [Suspect]
     Active Substance: SECUKINUMAB
     Indication: PSORIASIS
     Dosage: 300 MG, QMO
     Route: 058
     Dates: start: 20190111, end: 201907

REACTIONS (18)
  - Chronic kidney disease [Unknown]
  - Weight decreased [Not Recovered/Not Resolved]
  - Haemoglobin increased [Unknown]
  - Therapeutic product effect decreased [Unknown]
  - Eyelid oedema [Recovering/Resolving]
  - Blood triglycerides increased [Recovering/Resolving]
  - Low density lipoprotein increased [Unknown]
  - Hypercholesterolaemia [Recovering/Resolving]
  - Glomerulonephropathy [Unknown]
  - Blood albumin decreased [Unknown]
  - Proteinuria [Not Recovered/Not Resolved]
  - Nephrotic syndrome [Not Recovered/Not Resolved]
  - Skin lesion [Not Recovered/Not Resolved]
  - Blood pressure diastolic increased [Unknown]
  - Protein total decreased [Unknown]
  - Generalised erythema [Unknown]
  - Glucose tolerance impaired [Unknown]
  - Cortisol increased [Unknown]

NARRATIVE: CASE EVENT DATE: 201901
